FAERS Safety Report 11307839 (Version 1)
Quarter: 2015Q3

REPORT INFORMATION
  Report Type: Spontaneous
  Country: US (occurrence: US)
  Receive Date: 20150724
  Receipt Date: 20150724
  Transmission Date: 20151125
  Serious: Yes (Death, Hospitalization)
  Sender: FDA-Public Use
  Company Number: US-ACTELION-A-NJ2015-120978

PATIENT
  Age: 46 Year
  Sex: Male

DRUGS (1)
  1. VELETRI [Suspect]
     Active Substance: EPOPROSTENOL
     Indication: PULMONARY HYPERTENSION
     Dosage: 20 NG/KG, PER MIN
     Route: 042
     Dates: start: 20150702, end: 20150712

REACTIONS (13)
  - Thrombocytopenia [Unknown]
  - Hypoxia [Unknown]
  - Tachypnoea [Unknown]
  - Pulmonary arterial hypertension [Unknown]
  - Asthenia [Unknown]
  - Cyanosis [Fatal]
  - Right ventricular failure [Fatal]
  - Respiratory distress [Fatal]
  - Renal failure [Unknown]
  - Pulmonary oedema [Recovering/Resolving]
  - Dyspnoea [Recovering/Resolving]
  - Hypotension [Fatal]
  - Hyperhidrosis [Unknown]
